FAERS Safety Report 6603479-X (Version None)
Quarter: 2010Q1

REPORT INFORMATION
  Report Type: 
  Country: None (occurrence: None)
  Receive Date: 20100226
  Receipt Date: 20090702
  Transmission Date: 20100710
  Serious: No
  Sender: FDA-Public Use
  Company Number: A0796475A

PATIENT
  Sex: Female

DRUGS (3)
  1. VALTREX [Suspect]
     Indication: DRUG USE FOR UNKNOWN INDICATION
     Route: 048
     Dates: start: 19890101
  2. FAMVIR [Suspect]
     Dosage: 500MG THREE TIMES PER DAY
     Route: 065
     Dates: start: 19890101
  3. ACYCLOVIR [Suspect]
     Route: 065
     Dates: start: 19890101

REACTIONS (1)
  - DRUG INEFFECTIVE [None]
